FAERS Safety Report 6646703-X (Version None)
Quarter: 2010Q1

REPORT INFORMATION
  Report Type: 
  Country: None (occurrence: None)
  Receive Date: 20100323
  Receipt Date: 20100209
  Transmission Date: 20100710
  Serious: Yes (Other)
  Sender: FDA-Public Use
  Company Number: US-ROCHE-692526

PATIENT
  Sex: Male
  Weight: 114.8 kg

DRUGS (5)
  1. PEGASYS [Suspect]
     Indication: HEPATITIS C
     Route: 065
     Dates: start: 20090513
  2. RIBAVIRIN [Suspect]
     Indication: HEPATITIS C
     Route: 065
     Dates: start: 20090513
  3. ASPIRIN [Concomitant]
     Indication: HYPERTENSION
  4. PRILOSEC [Concomitant]
  5. BYSTOLIC [Concomitant]
     Indication: HYPERTENSION

REACTIONS (1)
  - DEEP VEIN THROMBOSIS [None]
